FAERS Safety Report 26054161 (Version 2)
Quarter: 2025Q4

REPORT INFORMATION
  Report Type: Spontaneous
  Country: US (occurrence: US)
  Receive Date: 20251117
  Receipt Date: 20251202
  Transmission Date: 20260118
  Serious: Yes (Other)
  Sender: INCYTE
  Company Number: US-EVENT-004923

PATIENT
  Age: 25 Month

DRUGS (2)
  1. JAKAFI [Suspect]
     Active Substance: RUXOLITINIB
     Indication: Graft versus host disease
     Dosage: 5 MILLIGRAM, BID
     Route: 065
  2. JAKAFI [Suspect]
     Active Substance: RUXOLITINIB
     Dosage: 5 MILLIGRAM, BID IN GASTROSTOMY TUBE, 1 TABLET (5 MG TOTAL) IN THE MORNING AND 1 TABLET (5 MG TOTAL) IN THE EVENING

REACTIONS (3)
  - Sinus disorder [Unknown]
  - Off label use [Unknown]
  - Wrong technique in product usage process [Unknown]
